FAERS Safety Report 5017894-1 (Version None)
Quarter: 2006Q2

REPORT INFORMATION
  Report Type: 
  Country: None (occurrence: None)
  Receive Date: 20060602
  Receipt Date: 20060602
  Transmission Date: 20061013
  Serious: Yes (Death)
  Sender: FDA-Public Use
  Company Number: None

PATIENT
  Sex: Female
  Weight: 57.1 kg

DRUGS (9)
  1. IRINOTECAN [Suspect]
     Indication: GLIOBLASTOMA MULTIFORME
     Dosage: 325MG/M2 DAY 1, 8, 22, 29 IV
     Route: 042
     Dates: start: 20060425, end: 20060523
  2. TEMODAR [Suspect]
     Indication: GLIOBLASTOMA MULTIFORME
     Dosage: 200MG/M2 DAYS 1-5 PO
     Route: 048
     Dates: start: 20060425, end: 20060429
  3. DILANTIN [Concomitant]
  4. PEPCID [Concomitant]
  5. DECADRON [Concomitant]
  6. FLORINEF [Concomitant]
  7. MICARDIS [Concomitant]
  8. HUMALOG [Concomitant]
  9. LANTUS [Concomitant]

REACTIONS (9)
  - APHASIA [None]
  - BRAIN HERNIATION [None]
  - COMPUTERISED TOMOGRAM ABNORMAL [None]
  - CONDITION AGGRAVATED [None]
  - DEPRESSED LEVEL OF CONSCIOUSNESS [None]
  - FATIGUE [None]
  - PYREXIA [None]
  - RESPIRATORY ARREST [None]
  - SOMNOLENCE [None]
